FAERS Safety Report 12095208 (Version 2)
Quarter: 2016Q1

REPORT INFORMATION
  Report Type: Spontaneous
  Country: US (occurrence: US)
  Receive Date: 20160219
  Receipt Date: 20160302
  Transmission Date: 20160526
  Serious: Yes (Death, Other)
  Sender: FDA-Public Use
  Company Number: US-BIOGEN-2016BI00190582

PATIENT
  Age: 42 Year
  Sex: Male
  Weight: 36.32 kg

DRUGS (1)
  1. TECFIDERA [Suspect]
     Active Substance: DIMETHYL FUMARATE
     Indication: MULTIPLE SCLEROSIS
     Route: 065

REACTIONS (4)
  - Weight decreased [Unknown]
  - Asthenia [Unknown]
  - Multiple sclerosis [Fatal]
  - Pneumonia [Fatal]
